FAERS Safety Report 23633908 (Version 5)
Quarter: 2024Q3

REPORT INFORMATION
  Report Type: Spontaneous
  Country: US (occurrence: US)
  Receive Date: 20240314
  Receipt Date: 20240806
  Transmission Date: 20241017
  Serious: No
  Sender: ELI LILLY AND CO
  Company Number: US-ELI_LILLY_AND_COMPANY-US202403007058

PATIENT
  Age: 48 Year
  Sex: Female

DRUGS (2)
  1. VERZENIO [Suspect]
     Active Substance: ABEMACICLIB
     Indication: Breast cancer female
     Dosage: 150 MG, BID
     Route: 048
     Dates: start: 20210518
  2. VERZENIO [Suspect]
     Active Substance: ABEMACICLIB
     Dosage: 1 DOSAGE FORM, BID
     Route: 048

REACTIONS (10)
  - Crohn^s disease [Not Recovered/Not Resolved]
  - Restless legs syndrome [Unknown]
  - Abdominal discomfort [Not Recovered/Not Resolved]
  - Illness [Not Recovered/Not Resolved]
  - Depression [Not Recovered/Not Resolved]
  - Anxiety [Not Recovered/Not Resolved]
  - Sleep disorder due to a general medical condition [Not Recovered/Not Resolved]
  - Fibromyalgia [Not Recovered/Not Resolved]
  - Nasopharyngitis [Not Recovered/Not Resolved]
  - Fatigue [Not Recovered/Not Resolved]
